FAERS Safety Report 22043688 (Version 1)
Quarter: 2023Q1

REPORT INFORMATION
  Report Type: Spontaneous
  Country: US (occurrence: US)
  Receive Date: 20230228
  Receipt Date: 20230228
  Transmission Date: 20230418
  Serious: No
  Sender: FDA-Public Use
  Company Number: US-002147023-NVSC2023US045206

PATIENT
  Age: 83 Year
  Sex: Female
  Weight: 63.5 kg

DRUGS (1)
  1. LEQVIO [Suspect]
     Active Substance: INCLISIRAN SODIUM
     Indication: Arteriosclerosis
     Dosage: 1.5 ML, OTHER (284 MG,INITIAL DOSE, 3 MONTH DOSE, EVERY 6 MONTHS)
     Route: 058
     Dates: start: 20230104

REACTIONS (1)
  - Urinary tract infection [Not Recovered/Not Resolved]

NARRATIVE: CASE EVENT DATE: 20230104
